FAERS Safety Report 15756797 (Version 1)
Quarter: 2018Q4

REPORT INFORMATION
  Report Type: Spontaneous
  Country: US (occurrence: US)
  Receive Date: 20181223
  Receipt Date: 20181223
  Transmission Date: 20190205
  Serious: Yes (Hospitalization, Disabling)
  Sender: FDA-Public Use
  Company Number: None

PATIENT
  Age: 18 Year
  Sex: Female
  Weight: 46.35 kg

DRUGS (1)
  1. MIRTAZAPINE. [Suspect]
     Active Substance: MIRTAZAPINE
     Indication: DEPRESSION
     Dosage: ?          QUANTITY:1 TABLET(S);?
     Route: 048

REACTIONS (7)
  - Product substitution issue [None]
  - Serotonin syndrome [None]
  - Increased appetite [None]
  - Therapeutic response unexpected [None]
  - Vomiting [None]
  - Acidosis [None]
  - Nausea [None]

NARRATIVE: CASE EVENT DATE: 20181213
